FAERS Safety Report 4765756-7 (Version None)
Quarter: 2005Q3

REPORT INFORMATION
  Report Type: 
  Country: None (occurrence: None)
  Receive Date: 20050912
  Receipt Date: 20050905
  Transmission Date: 20060218
  Serious: Yes (Other)
  Sender: FDA-Public Use
  Company Number: 2005PK01638

PATIENT
  Age: 50 Year
  Sex: Male

DRUGS (1)
  1. NAROPIN [Suspect]
     Indication: SPINAL ANAESTHESIA
     Route: 008
     Dates: start: 20050601

REACTIONS (2)
  - ANAESTHETIC COMPLICATION [None]
  - BRADYCARDIA [None]
